FAERS Safety Report 5470784-2 (Version None)
Quarter: 2007Q3

REPORT INFORMATION
  Report Type: 
  Country: None (occurrence: None)
  Receive Date: 20070928
  Receipt Date: 20070919
  Transmission Date: 20080115
  Serious: Yes (Other)
  Sender: FDA-Public Use
  Company Number: GB-AVENTIS-200322414GDDC

PATIENT
  Sex: Male
  Weight: 4.6 kg

DRUGS (6)
  1. FRUSEMIDE [Suspect]
  2. DIAZOXIDE [Suspect]
     Indication: HYPERINSULINAEMIA
  3. DIAZOXIDE [Suspect]
  4. DIAZOXIDE [Suspect]
  5. SPIRONOLACTONE [Suspect]
  6. ASPIRIN [Suspect]

REACTIONS (2)
  - DRUG INTERACTION [None]
  - HYPERGLYCAEMIA [None]
